FAERS Safety Report 11380234 (Version 6)
Quarter: 2016Q2

REPORT INFORMATION
  Report Type: Report from Study
  Country: IT (occurrence: IT)
  Receive Date: 20150814
  Receipt Date: 20160516
  Transmission Date: 20160815
  Serious: Yes (Other)
  Sender: FDA-Public Use
  Company Number: IT-MYLANLABS-2015M1027046

PATIENT

DRUGS (3)
  1. GILENYA [Suspect]
     Active Substance: FINGOLIMOD HYDROCHLORIDE
     Indication: MULTIPLE SCLEROSIS
     Dosage: 0.5 MG, QD
     Route: 048
     Dates: start: 20121014, end: 20150428
  2. BACLOFEN. [Suspect]
     Active Substance: BACLOFEN
     Indication: MUSCLE SPASTICITY
     Dosage: 25 MG, BID
     Route: 048
     Dates: start: 20140617, end: 20150428
  3. BACLOFEN. [Suspect]
     Active Substance: BACLOFEN
     Dosage: 75 MG, BID
     Route: 048
     Dates: end: 20150625

REACTIONS (3)
  - Abortion spontaneous [Recovered/Resolved]
  - Gestational diabetes [Unknown]
  - Maternal exposure during pregnancy [Recovered/Resolved]

NARRATIVE: CASE EVENT DATE: 20150217
